FAERS Safety Report 7995895-9 (Version None)
Quarter: 2011Q4

REPORT INFORMATION
  Report Type: 
  Country: None (occurrence: None)
  Receive Date: 20111220
  Receipt Date: 20111216
  Transmission Date: 20120403
  Serious: Yes (Other)
  Sender: FDA-Public Use
  Company Number: US-ROCHE-1022810

PATIENT
  Sex: Female

DRUGS (4)
  1. ACCUTANE [Suspect]
     Dates: start: 20020101
  2. ACCUTANE [Suspect]
     Indication: PRODUCT USED FOR UNKNOWN INDICATION
     Dates: start: 19990101
  3. ACCUTANE [Suspect]
     Dates: start: 20000101
  4. ACCUTANE [Suspect]
     Dates: start: 20010101

REACTIONS (2)
  - IRRITABLE BOWEL SYNDROME [None]
  - POLYP [None]
